FAERS Safety Report 4941936-2 (Version None)
Quarter: 2006Q1

REPORT INFORMATION
  Report Type: 
  Country: None (occurrence: None)
  Receive Date: 20060313
  Receipt Date: 20060209
  Transmission Date: 20060701
  Serious: Yes (Hospitalization, Disabling, Other)
  Sender: FDA-Public Use
  Company Number: US-MERCK-0602USA03992

PATIENT
  Age: 58 Year
  Sex: Male
  Weight: 91 kg

DRUGS (15)
  1. VIOXX [Suspect]
     Indication: OSTEOARTHRITIS
     Route: 048
     Dates: start: 20000301, end: 20031001
  2. VIOXX [Suspect]
     Indication: ARTHRALGIA
     Route: 048
     Dates: start: 20000301, end: 20031001
  3. MONOPRIL [Concomitant]
     Indication: CARDIAC DISORDER
     Route: 065
     Dates: start: 20010630, end: 20030911
  4. ATENOLOL [Concomitant]
     Indication: CARDIAC DISORDER
     Route: 065
     Dates: start: 20010101
  5. ASPIRIN [Concomitant]
     Indication: PROPHYLAXIS
     Route: 065
     Dates: start: 20020101
  6. LIPITOR [Concomitant]
     Indication: BLOOD CHOLESTEROL INCREASED
     Route: 065
     Dates: start: 20010630, end: 20030101
  7. DICLOFENAC [Concomitant]
     Indication: PAIN
     Route: 065
     Dates: start: 20020101, end: 20030101
  8. ALLEGRA [Concomitant]
     Route: 065
  9. AVANDIA [Concomitant]
     Route: 065
  10. CELEXA [Concomitant]
     Route: 065
  11. CLONAZEPAM [Concomitant]
     Route: 065
  12. HUMULIN [Concomitant]
     Route: 065
  13. VIAGRA [Concomitant]
     Route: 065
  14. TEQUIN [Concomitant]
     Route: 065
  15. ACETAMINOPHEN AND HYDROCODONE BITARTRATE [Concomitant]
     Route: 065

REACTIONS (7)
  - ANGINA PECTORIS [None]
  - CEREBROVASCULAR ACCIDENT [None]
  - CHRONIC SINUSITIS [None]
  - COLON ADENOMA [None]
  - HYPERTENSION [None]
  - MAJOR DEPRESSION [None]
  - TRANSIENT ISCHAEMIC ATTACK [None]
